FAERS Safety Report 7004296-1 (Version None)
Quarter: 2010Q3

REPORT INFORMATION
  Report Type: 
  Country: None (occurrence: None)
  Receive Date: 20100921
  Receipt Date: 20100914
  Transmission Date: 20110219
  Serious: Yes (Death, Hospitalization)
  Sender: FDA-Public Use
  Company Number: US-BIOGENIDEC-2009BI032389

PATIENT
  Sex: Female

DRUGS (3)
  1. AVONEX [Suspect]
     Indication: MULTIPLE SCLEROSIS
     Route: 030
     Dates: start: 20090901
  2. AVONEX [Suspect]
     Route: 030
     Dates: start: 20010829, end: 20030501
  3. AVONEX [Suspect]
     Route: 030
     Dates: start: 20030801

REACTIONS (4)
  - ABDOMINAL PAIN UPPER [None]
  - CARDIAC ARREST [None]
  - HEPATIC FAILURE [None]
  - MULTIPLE SCLEROSIS [None]
